FAERS Safety Report 4476649-7 (Version None)
Quarter: 2004Q4

REPORT INFORMATION
  Report Type: 
  Country: None (occurrence: None)
  Receive Date: 20041015
  Receipt Date: 20041015
  Transmission Date: 20050328
  Serious: Yes (Other)
  Sender: FDA-Public Use
  Company Number: None

PATIENT
  Sex: Female
  Weight: 107.0489 kg

DRUGS (2)
  1. ZANAFLEX [Suspect]
     Indication: MULTIPLE SCLEROSIS
     Dosage: NIGHTLY
     Dates: start: 20040101, end: 20041014
  2. ZANAFLEX [Suspect]
     Indication: MUSCLE SPASMS
     Dosage: NIGHTLY
     Dates: start: 20040101, end: 20041014

REACTIONS (4)
  - DEPRESSED LEVEL OF CONSCIOUSNESS [None]
  - HALLUCINATION [None]
  - HALLUCINATION, VISUAL [None]
  - NIGHTMARE [None]
